FAERS Safety Report 5356452-6 (Version None)
Quarter: 2007Q2

REPORT INFORMATION
  Report Type: 
  Country: None (occurrence: None)
  Receive Date: 20070530
  Receipt Date: 20061206
  Transmission Date: 20071010
  Serious: Yes (Hospitalization)
  Sender: FDA-Public Use
  Company Number: US200609000285

PATIENT
  Age: 33 Year
  Sex: Female
  Weight: 167.8 kg

DRUGS (11)
  1. ZYPREXA [Suspect]
     Dosage: 20 MG
     Dates: start: 19990101, end: 20050101
  2. SEROQUEL [Concomitant]
  3. RISPERDAL [Concomitant]
  4. DEPAKOTE [Concomitant]
  5. WELLBUTRIN [Concomitant]
  6. CELEXA [Concomitant]
  7. FLUOXETINE HCL [Concomitant]
  8. SERZONE [Concomitant]
  9. PAXIL [Concomitant]
  10. ZOLOFT [Concomitant]
  11. EFFEXOR [Concomitant]

REACTIONS (5)
  - BLOOD CHOLESTEROL INCREASED [None]
  - HYPERTENSION [None]
  - OBESITY [None]
  - PANCREATITIS [None]
  - POLYDIPSIA [None]
